FAERS Safety Report 8279367-2 (Version None)
Quarter: 2012Q2

REPORT INFORMATION
  Report Type: 
  Country: None (occurrence: None)
  Receive Date: 20120412
  Receipt Date: 20110927
  Transmission Date: 20120825
  Serious: No
  Sender: FDA-Public Use
  Company Number: US-ASTRAZENECA-2011SE30279

PATIENT
  Age: 75 Year
  Sex: Female
  Weight: 60.8 kg

DRUGS (4)
  1. NEXIUM [Suspect]
     Route: 048
  2. NEXIUM [Suspect]
     Route: 048
     Dates: start: 20090801
  3. ASACOL [Concomitant]
     Indication: GASTROOESOPHAGEAL REFLUX DISEASE
  4. NEXIUM [Suspect]
     Indication: GASTROOESOPHAGEAL REFLUX DISEASE
     Route: 048
     Dates: start: 19890101

REACTIONS (4)
  - HIATUS HERNIA [None]
  - GASTRIC POLYPS [None]
  - OESOPHAGITIS [None]
  - GASTRITIS [None]
